FAERS Safety Report 6532349-0 (Version None)
Quarter: 2010Q1

REPORT INFORMATION
  Report Type: 
  Country: None (occurrence: None)
  Receive Date: 20100108
  Receipt Date: 20091231
  Transmission Date: 20100710
  Serious: Yes (Other)
  Sender: FDA-Public Use
  Company Number: IT-GENENTECH-296434

PATIENT
  Sex: Female

DRUGS (3)
  1. SOMATROPIN [Suspect]
     Indication: PITUITARY TUMOUR BENIGN
     Dosage: 0.4 MG, 7/WEEK
     Route: 065
     Dates: start: 20080129, end: 20091222
  2. ESTROPROGESTIN PREPARATIONS [Concomitant]
     Indication: DRUG USE FOR UNKNOWN INDICATION
     Dosage: 1 A?G, UNK
     Route: 048
     Dates: start: 19990129
  3. LEVOTHYROXINE SODIUM [Concomitant]
     Indication: DRUG USE FOR UNKNOWN INDICATION
     Dosage: 175 A?G, UNK
     Route: 048
     Dates: start: 19990129

REACTIONS (1)
  - CHOROID MELANOMA [None]
